FAERS Safety Report 10217012 (Version 1)
Quarter: 2014Q2

REPORT INFORMATION
  Report Type: Spontaneous
  Country: US (occurrence: US)
  Receive Date: 20140604
  Receipt Date: 20140604
  Transmission Date: 20141212
  Serious: Yes (Life-Threatening)
  Sender: FDA-Public Use
  Company Number: CHPA2014US007490

PATIENT
  Sex: Female

DRUGS (3)
  1. TRANSDERM SCOP [Suspect]
     Indication: NAUSEA
     Dosage: UNK
     Route: 062
     Dates: start: 2012
  2. TRANSDERM SCOP [Suspect]
     Indication: VOMITING
  3. TRANSDERM SCOP [Suspect]
     Indication: BALANCE DISORDER

REACTIONS (1)
  - Vomiting [Recovered/Resolved]
